FAERS Safety Report 8320072-1 (Version None)
Quarter: 2012Q2

REPORT INFORMATION
  Report Type: 
  Country: None (occurrence: None)
  Receive Date: 20120428
  Receipt Date: 20120419
  Transmission Date: 20120825
  Serious: Yes (Other)
  Sender: FDA-Public Use
  Company Number: JP-VERTEX PHARMACEUTICALS INC.-AE-2012-005925

PATIENT
  Age: 23 Year
  Sex: Male

DRUGS (9)
  1. TELAVIC (TELAPREVIR) [Suspect]
     Indication: HEPATITIS C
     Route: 048
     Dates: start: 20120302
  2. PEGINTERFERON ALFA-2B [Concomitant]
     Route: 051
     Dates: start: 20120316
  3. TRAVELMIN [Concomitant]
     Route: 048
  4. PRIMPERAN TAB [Concomitant]
     Route: 048
     Dates: start: 20120305
  5. LOBU [Concomitant]
     Route: 048
     Dates: start: 20120303
  6. LANSOPRAZOLE [Concomitant]
     Route: 048
     Dates: start: 20120303
  7. PEGINTERFERON ALFA-2B [Concomitant]
     Indication: HEPATITIS C
     Route: 051
     Dates: start: 20120302
  8. RIBAVIRIN [Concomitant]
     Indication: HEPATITIS C
     Route: 048
     Dates: start: 20120302
  9. SELBEX [Concomitant]
     Route: 048
     Dates: start: 20111021

REACTIONS (1)
  - NEUTROPHIL COUNT DECREASED [None]
